FAERS Safety Report 6323730-3 (Version None)
Quarter: 2009Q3

REPORT INFORMATION
  Report Type: 
  Country: None (occurrence: None)
  Receive Date: 20090824
  Receipt Date: 20090608
  Transmission Date: 20100115
  Serious: No
  Sender: FDA-Public Use
  Company Number: US-ABBOTT-09P-163-0578562-00

PATIENT
  Sex: Male
  Weight: 120.76 kg

DRUGS (13)
  1. NIASPAN [Suspect]
     Indication: HIGH DENSITY LIPOPROTEIN DECREASED
     Dosage: QHS
     Route: 048
     Dates: start: 20090501
  2. PRAVASTATIN [Concomitant]
     Indication: DRUG USE FOR UNKNOWN INDICATION
     Dosage: QHS
     Route: 048
  3. CALCIUM/MAG/ZINC [Concomitant]
     Indication: DRUG USE FOR UNKNOWN INDICATION
  4. FOLIC ACID [Concomitant]
     Indication: DRUG USE FOR UNKNOWN INDICATION
  5. VITAMIN B-12 [Concomitant]
     Indication: DRUG USE FOR UNKNOWN INDICATION
  6. SELENIUM [Concomitant]
     Indication: DRUG USE FOR UNKNOWN INDICATION
  7. VIT E [Concomitant]
     Indication: DRUG USE FOR UNKNOWN INDICATION
     Dosage: QAM
  8. VIT C [Concomitant]
     Indication: DRUG USE FOR UNKNOWN INDICATION
     Dosage: QAM
  9. BETA-CARATINE [Concomitant]
     Indication: DRUG USE FOR UNKNOWN INDICATION
  10. CHROMIUM [Concomitant]
     Indication: DRUG USE FOR UNKNOWN INDICATION
  11. PICOLINATE [Concomitant]
     Indication: DRUG USE FOR UNKNOWN INDICATION
  12. CINNAMON [Concomitant]
     Indication: DRUG USE FOR UNKNOWN INDICATION
  13. RESVERATROL [Concomitant]
     Indication: DRUG USE FOR UNKNOWN INDICATION

REACTIONS (2)
  - FLUSHING [None]
  - WEIGHT DECREASED [None]
